FAERS Safety Report 4350759-7 (Version None)
Quarter: 2004Q2

REPORT INFORMATION
  Report Type: 
  Country: None (occurrence: None)
  Receive Date: 20040427
  Receipt Date: 20040412
  Transmission Date: 20050107
  Serious: Yes (Hospitalization)
  Sender: FDA-Public Use
  Company Number: 2004209040US

PATIENT
  Age: 53 Year
  Sex: Male
  Weight: 115.6 kg

DRUGS (2)
  1. ROGAINE [Suspect]
     Indication: ALOPECIA
     Dosage: 1 ML, TOPICAL
     Route: 061
     Dates: start: 20000101, end: 20000101
  2. NEXIUM [Concomitant]

REACTIONS (1)
  - INTRACRANIAL ANEURYSM [None]
